FAERS Safety Report 5985203-7 (Version None)
Quarter: 2008Q4

REPORT INFORMATION
  Report Type: 
  Country: None (occurrence: None)
  Receive Date: 20081203
  Receipt Date: 20081120
  Transmission Date: 20090506
  Serious: Yes (Hospitalization)
  Sender: FDA-Public Use
  Company Number: 2008AL011976

PATIENT
  Age: 70 Year
  Sex: Female
  Weight: 68.0396 kg

DRUGS (8)
  1. DIGOXIN [Suspect]
     Indication: HYPERTENSION
     Dosage: 0.25 MG, DAILY, PO
     Route: 048
     Dates: start: 20080923
  2. PANTOPRAZOLE SODIUM [Concomitant]
  3. LORAZEPAM [Concomitant]
  4. IMODIUM [Concomitant]
  5. LEVOFLOXACIN [Concomitant]
  6. IBUPROFEN [Concomitant]
  7. LONAFARNIB [Concomitant]
  8. DOCETAXEL [Concomitant]

REACTIONS (5)
  - ASTHENIA [None]
  - DEHYDRATION [None]
  - DIARRHOEA [None]
  - NAUSEA [None]
  - VOMITING [None]
